FAERS Safety Report 9846958 (Version 1)
Quarter: 2014Q1

REPORT INFORMATION
  Report Type: Spontaneous
  Country: IT (occurrence: IT)
  Receive Date: 20140127
  Receipt Date: 20140127
  Transmission Date: 20141002
  Serious: Yes (Hospitalization, Other)
  Sender: FDA-Public Use
  Company Number: IT-ELI_LILLY_AND_COMPANY-IT201401007826

PATIENT
  Age: 63 Year
  Sex: Female

DRUGS (7)
  1. OLANZAPINE [Suspect]
     Indication: PSYCHOTIC DISORDER
     Dosage: 1 DF, BID
  2. OLANZAPINE [Interacting]
     Dosage: 10 MG, EACH EVENING
  3. ARIPIPRAZOLE [Interacting]
     Indication: PSYCHOTIC DISORDER
     Dosage: 5 MG, QD
     Route: 065
  4. TRIAZOLAM [Concomitant]
     Indication: PRODUCT USED FOR UNKNOWN INDICATION
     Dosage: 1 DF, PRN
     Route: 065
  5. TRIAZOLAM [Concomitant]
     Dosage: 0.25 MG, EACH EVENING
     Route: 065
  6. ALPRAZOLAM [Concomitant]
     Indication: PRODUCT USED FOR UNKNOWN INDICATION
     Dosage: 0.25 MG, EACH MORNING
     Route: 065
  7. PAROXETINA [Concomitant]
     Indication: PRODUCT USED FOR UNKNOWN INDICATION
     Dosage: 10 MG, QD
     Route: 065

REACTIONS (5)
  - Psychotic disorder [Recovered/Resolved]
  - Pneumonia [Recovered/Resolved]
  - Neuroleptic malignant syndrome [Recovered/Resolved]
  - Drug ineffective [Recovered/Resolved]
  - Drug interaction [Recovered/Resolved]
